FAERS Safety Report 6805281-2 (Version None)
Quarter: 2010Q2

REPORT INFORMATION
  Report Type: 
  Country: None (occurrence: None)
  Receive Date: 20100628
  Receipt Date: 20071002
  Transmission Date: 20101027
  Serious: No
  Sender: FDA-Public Use
  Company Number: US-PFIZER INC-2007083681

PATIENT
  Sex: Female

DRUGS (1)
  1. XALATAN [Suspect]
     Dates: start: 20070927, end: 20070929

REACTIONS (6)
  - EYE IRRITATION [None]
  - GLOSSODYNIA [None]
  - LIMB INJURY [None]
  - OROPHARYNGEAL BLISTERING [None]
  - THROAT IRRITATION [None]
  - UNEVALUABLE EVENT [None]
